FAERS Safety Report 17962838 (Version 1)
Quarter: 2020Q2

REPORT INFORMATION
  Report Type: Report from Study
  Country: US (occurrence: US)
  Receive Date: 20200630
  Receipt Date: 20200630
  Transmission Date: 20200714
  Serious: No
  Sender: FDA-Public Use
  Company Number: US-BIOVITRUM-2020US0910

PATIENT
  Age: 59 Year
  Sex: Female

DRUGS (2)
  1. KINERET [Suspect]
     Active Substance: ANAKINRA
     Indication: PERICARDIAL DISEASE
     Route: 058
     Dates: start: 20200130
  2. KINERET [Suspect]
     Active Substance: ANAKINRA
     Indication: PERICARDIAL EFFUSION
     Route: 058
     Dates: start: 20200129

REACTIONS (5)
  - Hypertension [Unknown]
  - Amnesia [Unknown]
  - Abnormal behaviour [Unknown]
  - Cough [Unknown]
  - Off label use [Unknown]

NARRATIVE: CASE EVENT DATE: 20200130
